FAERS Safety Report 5857992-3 (Version None)
Quarter: 2008Q3

REPORT INFORMATION
  Report Type: 
  Country: None (occurrence: None)
  Receive Date: 20080826
  Receipt Date: 20080819
  Transmission Date: 20090109
  Serious: Yes (Other)
  Sender: FDA-Public Use
  Company Number: IT-AVENTIS-200817802GDDC

PATIENT
  Age: 36 Year
  Sex: Female

DRUGS (8)
  1. LEFLUNOMIDE [Suspect]
     Indication: BK VIRUS INFECTION
     Dates: start: 20060101
  2. LEFLUNOMIDE [Suspect]
  3. THYMOGLOBULIN [Concomitant]
     Dosage: DOSE: UNK
  4. CORTICOSTEROIDS [Concomitant]
     Dosage: DOSE: UNK
  5. CORTICOSTEROIDS [Concomitant]
     Dosage: DOSE: DOSAGE REDUCED
  6. MYCOPHENOLATE MOFETIL [Concomitant]
     Dosage: DOSE: UNK
  7. TACROLIMUS [Concomitant]
     Dosage: DOSE: UNK
  8. TACROLIMUS [Concomitant]
     Dosage: DOSE: DOSAGE REDUCED

REACTIONS (2)
  - HEPATITIS C RNA [None]
  - OFF LABEL USE [None]
